FAERS Safety Report 22110011 (Version 1)
Quarter: 2023Q1

REPORT INFORMATION
  Report Type: Spontaneous
  Country: JP (occurrence: JP)
  Receive Date: 20230317
  Receipt Date: 20230317
  Transmission Date: 20230418
  Serious: Yes (Death, Hospitalization, Other)
  Sender: FDA-Public Use
  Company Number: JP-OTSUKA-2023_005205AA

PATIENT
  Age: 89 Year
  Sex: Male

DRUGS (8)
  1. TOLVAPTAN [Suspect]
     Active Substance: TOLVAPTAN
     Indication: Cardiac failure chronic
     Dosage: 8MG/DAY, UNK
     Route: 041
     Dates: start: 20230104, end: 20230105
  2. SAMSCA [Suspect]
     Active Substance: TOLVAPTAN
     Indication: Product used for unknown indication
     Dosage: UNK
     Route: 065
     Dates: start: 20210603, end: 20210603
  3. FUROSEMIDE [Suspect]
     Active Substance: FUROSEMIDE
     Indication: Product used for unknown indication
     Dosage: 20MG/DAY, UNK
     Route: 065
  4. CANRENOATE POTASSIUM [Suspect]
     Active Substance: CANRENOATE POTASSIUM
     Indication: Product used for unknown indication
     Dosage: 200MG/DAY, UNK
     Route: 065
  5. CARPERITIDE [Suspect]
     Active Substance: CARPERITIDE
     Indication: Product used for unknown indication
     Dosage: 2000MCG/DAY, UNK
     Route: 065
  6. DOBUTAMINE HYDROCHLORIDE [Suspect]
     Active Substance: DOBUTAMINE HYDROCHLORIDE
     Indication: Product used for unknown indication
     Dosage: 5 GAMMA/DAY, UNK
     Route: 065
  7. CEFTRIAXONE SODIUM [Suspect]
     Active Substance: CEFTRIAXONE SODIUM
     Indication: Product used for unknown indication
     Dosage: UNK
     Route: 065
  8. DEXTROSE [Concomitant]
     Active Substance: DEXTROSE
     Indication: Product used for unknown indication
     Dosage: 50 ML/DAY, UNK
     Route: 065
     Dates: start: 20230103

REACTIONS (7)
  - Drug-induced liver injury [Fatal]
  - Hypernatraemia [Fatal]
  - Multiple organ dysfunction syndrome [Fatal]
  - Bradycardia [Unknown]
  - Cardiac failure chronic [Unknown]
  - Pneumonia [Unknown]
  - Therapeutic product effect incomplete [Unknown]

NARRATIVE: CASE EVENT DATE: 20230105
